FAERS Safety Report 6228323-4 (Version None)
Quarter: 2009Q2

REPORT INFORMATION
  Report Type: 
  Country: None (occurrence: None)
  Receive Date: 20090612
  Receipt Date: 20090608
  Transmission Date: 20091009
  Serious: Yes (Other)
  Sender: FDA-Public Use
  Company Number: US-ABBOTT-09P-163-0578498-00

PATIENT
  Age: 46 Year
  Sex: Female

DRUGS (3)
  1. DEPAKOTE ER [Suspect]
     Indication: DRUG USE FOR UNKNOWN INDICATION
  2. FENOFIBRATE [Suspect]
     Indication: DRUG USE FOR UNKNOWN INDICATION
  3. WELCHOL [Suspect]
     Indication: DRUG USE FOR UNKNOWN INDICATION

REACTIONS (13)
  - AFFECT LABILITY [None]
  - ALOPECIA [None]
  - ANOREXIA [None]
  - CHEST PAIN [None]
  - CONSTIPATION [None]
  - DEPRESSION [None]
  - DYSPNOEA [None]
  - INCREASED TENDENCY TO BRUISE [None]
  - NERVOUSNESS [None]
  - SOMNOLENCE [None]
  - TRANSIENT ISCHAEMIC ATTACK [None]
  - TREMOR [None]
  - WEIGHT DECREASED [None]
